FAERS Safety Report 11205635 (Version 1)
Quarter: 2015Q2

REPORT INFORMATION
  Report Type: Spontaneous
  Country: US (occurrence: None)
  Receive Date: 20150619
  Receipt Date: 20150619
  Transmission Date: 20150821
  Serious: Yes (Life-Threatening)
  Sender: FDA-Public Use
  Company Number: None

PATIENT
  Age: 67 Year
  Sex: Female
  Weight: 55.79 kg

DRUGS (15)
  1. HYDROCHORTISONE (CORTEF) [Concomitant]
  2. POLYETHLENE GLYCOL (MIRALAX) [Concomitant]
  3. PREZISTA [Concomitant]
     Active Substance: DARUNAVIR ETHANOLATE
  4. INTELENCE [Suspect]
     Active Substance: ETRAVIRINE
     Indication: ACQUIRED IMMUNODEFICIENCY SYNDROME
     Route: 048
  5. CALCIUM [Concomitant]
     Active Substance: CALCIUM
  6. METOPROLOL TARTRATE (LOPRESSOR) [Concomitant]
  7. REMERON [Concomitant]
     Active Substance: MIRTAZAPINE
  8. NORVIR [Concomitant]
     Active Substance: RITONAVIR
  9. SUCRALFATE (CARAFATE) [Concomitant]
  10. LIPITOR [Concomitant]
     Active Substance: ATORVASTATIN CALCIUM
  11. CALCIUM CARBONATE-VITAMIN D3 [Concomitant]
  12. DOLUTEGRAVIR (TIVICAY) [Concomitant]
  13. INTELENCE [Suspect]
     Active Substance: ETRAVIRINE
     Indication: HIV INFECTION
     Route: 048
  14. OMEPRAZOLE (PRILOSEC) [Concomitant]
  15. WARFARIN (COUMADIN) [Concomitant]

REACTIONS (3)
  - Prothrombin time prolonged [None]
  - International normalised ratio increased [None]
  - Drug dependence [None]

NARRATIVE: CASE EVENT DATE: 20150617
